FAERS Safety Report 23534181 (Version 1)
Quarter: 2024Q1

REPORT INFORMATION
  Report Type: Spontaneous
  Country: RS (occurrence: RS)
  Receive Date: 20240216
  Receipt Date: 20240216
  Transmission Date: 20240410
  Serious: Yes (Life-Threatening, Other)
  Sender: FDA-Public Use
  Company Number: RS-PRINSTON PHARMACEUTICAL INC.-2024PRN00069

PATIENT
  Age: 30 Year
  Sex: Female

DRUGS (12)
  1. VENLAFAXINE [Suspect]
     Active Substance: VENLAFAXINE HYDROCHLORIDE
     Indication: Major depression
     Dosage: 225 MG PER DAY
     Dates: start: 2021, end: 202204
  2. VENLAFAXINE [Suspect]
     Active Substance: VENLAFAXINE HYDROCHLORIDE
     Dosage: 225 MG PER DAY
     Dates: start: 202204, end: 202209
  3. VENLAFAXINE [Suspect]
     Active Substance: VENLAFAXINE HYDROCHLORIDE
     Dosage: 150 MG PER DAY
     Dates: start: 202209, end: 202209
  4. VENLAFAXINE [Suspect]
     Active Substance: VENLAFAXINE HYDROCHLORIDE
     Dosage: 75 MG PER DAY
     Dates: start: 202209, end: 202209
  5. VENLAFAXINE [Suspect]
     Active Substance: VENLAFAXINE HYDROCHLORIDE
     Dosage: 225 MG PER DAY
     Dates: start: 202209
  6. VENLAFAXINE [Suspect]
     Active Substance: VENLAFAXINE HYDROCHLORIDE
     Dosage: VERY SLOW TAPER; CURRENT DOSE: 112.5 MG DAILY
  7. QUETIAPINE [Concomitant]
     Active Substance: QUETIAPINE
     Dosage: 75 MG PER DAY
     Dates: start: 2021
  8. QUETIAPINE [Concomitant]
     Active Substance: QUETIAPINE
     Dosage: 1500 MG (ONCE IN SUICIDE ATTEMPT)
     Dates: start: 202209, end: 202209
  9. LORAZEPAM [Concomitant]
     Active Substance: LORAZEPAM
     Dosage: 3.75 MG PER DAY
     Dates: start: 2021, end: 202209
  10. LORAZEPAM [Concomitant]
     Active Substance: LORAZEPAM
     Dosage: 75 MG (ONCE IN SUICIDE ATTEMPT)
     Dates: start: 202209, end: 202209
  11. LORAZEPAM [Concomitant]
     Active Substance: LORAZEPAM
     Dosage: VERY SLOW TAPER
  12. LAMOTRIGINE [Concomitant]
     Active Substance: LAMOTRIGINE
     Dosage: 200 MG PER DAY

REACTIONS (4)
  - Antidepressant discontinuation syndrome [Recovered/Resolved]
  - Suicidal ideation [Recovered/Resolved]
  - Suicide attempt [Recovered/Resolved]
  - Overdose [Recovered/Resolved]

NARRATIVE: CASE EVENT DATE: 20220401
